FAERS Safety Report 12861789 (Version 7)
Quarter: 2017Q1

REPORT INFORMATION
  Report Type: Report from Study
  Country: US (occurrence: US)
  Receive Date: 20161019
  Receipt Date: 20170307
  Transmission Date: 20170428
  Serious: Yes (Hospitalization)
  Sender: FDA-Public Use
  Company Number: US-JNJFOC-20161015409

PATIENT
  Age: 92 Year
  Sex: Female

DRUGS (16)
  1. LOSARTAN. [Concomitant]
     Active Substance: LOSARTAN
  2. VITAMIN D [Concomitant]
     Active Substance: CHOLECALCIFEROL
  3. IMBRUVICA [Suspect]
     Active Substance: IBRUTINIB
     Indication: CHRONIC LYMPHOCYTIC LEUKAEMIA
     Route: 048
     Dates: start: 20150817
  4. NORVASC [Concomitant]
     Active Substance: AMLODIPINE BESYLATE
  5. VITAMIN B12 [Concomitant]
     Active Substance: CYANOCOBALAMIN
  6. CLARITIN [Concomitant]
     Active Substance: LORATADINE
  7. IRON [Concomitant]
     Active Substance: IRON
  8. IMBRUVICA [Suspect]
     Active Substance: IBRUTINIB
     Indication: CHRONIC LYMPHOCYTIC LEUKAEMIA
     Route: 048
     Dates: start: 20160319, end: 20170221
  9. IMBRUVICA [Suspect]
     Active Substance: IBRUTINIB
     Indication: CHRONIC LYMPHOCYTIC LEUKAEMIA
     Route: 048
     Dates: start: 20150917
  10. HYDROCHLOROTHIAZIDE. [Concomitant]
     Active Substance: HYDROCHLOROTHIAZIDE
  11. VITAMIN B [Concomitant]
     Active Substance: VITAMIN B
  12. IMBRUVICA [Suspect]
     Active Substance: IBRUTINIB
     Indication: CHRONIC LYMPHOCYTIC LEUKAEMIA
     Route: 048
     Dates: start: 201702
  13. SYNTHROID [Concomitant]
     Active Substance: LEVOTHYROXINE SODIUM
  14. VITAMIN C [Concomitant]
     Active Substance: ASCORBIC ACID
  15. FERROUS SULFATE. [Concomitant]
     Active Substance: FERROUS SULFATE
  16. ZOCOR [Concomitant]
     Active Substance: SIMVASTATIN

REACTIONS (8)
  - Rash [Unknown]
  - Adverse drug reaction [Unknown]
  - Off label use [Unknown]
  - Cellulitis [Unknown]
  - Peripheral swelling [Unknown]
  - Contusion [Unknown]
  - Incorrect dose administered [Unknown]
  - White blood cell count increased [Unknown]

NARRATIVE: CASE EVENT DATE: 20150817
